FAERS Safety Report 5069729-9 (Version None)
Quarter: 2006Q3

REPORT INFORMATION
  Report Type: 
  Country: None (occurrence: None)
  Receive Date: 20060803
  Receipt Date: 20060719
  Transmission Date: 20061208
  Serious: Yes (Death)
  Sender: FDA-Public Use
  Company Number: US-AMGEN-STX187100

PATIENT
  Sex: Female

DRUGS (2)
  1. ENBREL [Suspect]
     Indication: RHEUMATOID ARTHRITIS
     Route: 058
     Dates: start: 20031101, end: 20060512
  2. HUMIRA [Concomitant]
     Route: 058
     Dates: start: 20060331

REACTIONS (2)
  - CEREBRAL ARTERY EMBOLISM [None]
  - DRUG INEFFECTIVE [None]
